FAERS Safety Report 4982606-4 (Version None)
Quarter: 2006Q2

REPORT INFORMATION
  Report Type: 
  Country: None (occurrence: None)
  Receive Date: 20060420
  Receipt Date: 20060404
  Transmission Date: 20061013
  Serious: Yes (Other)
  Sender: FDA-Public Use
  Company Number: 2005149205

PATIENT
  Age: 78 Year
  Sex: Female

DRUGS (1)
  1. MACUGEN [Suspect]
     Indication: MACULAR DEGENERATION
     Dosage: INTRAVITREOUS

REACTIONS (3)
  - CHOROIDAL NEOVASCULARISATION [None]
  - RETINAL DETACHMENT [None]
  - VISUAL ACUITY REDUCED [None]
